FAERS Safety Report 12199688 (Version 3)
Quarter: 2016Q2

REPORT INFORMATION
  Report Type: Report from Study
  Country: US (occurrence: US)
  Receive Date: 20160322
  Receipt Date: 20160608
  Transmission Date: 20160815
  Serious: Yes (Other)
  Sender: FDA-Public Use
  Company Number: US-AMGEN-USASL2016035062

PATIENT
  Age: 72 Year
  Sex: Male

DRUGS (1)
  1. NPLATE [Suspect]
     Active Substance: ROMIPLOSTIM
     Indication: IMMUNE THROMBOCYTOPENIC PURPURA
     Dosage: UNK
     Route: 065
     Dates: start: 201007

REACTIONS (8)
  - Platelet count abnormal [Recovering/Resolving]
  - Neuropathy peripheral [Unknown]
  - Diabetes mellitus [Unknown]
  - Herpes zoster [Recovering/Resolving]
  - Skin haemorrhage [Unknown]
  - Platelet count decreased [Unknown]
  - Drug effect decreased [Unknown]
  - Atrioventricular block [Unknown]

NARRATIVE: CASE EVENT DATE: 201007
